FAERS Safety Report 5237217-2 (Version None)
Quarter: 2007Q1

REPORT INFORMATION
  Report Type: 
  Country: None (occurrence: None)
  Receive Date: 20061208
  Receipt Date: 20050525
  Transmission Date: 20070707
  Serious: Yes (Other)
  Sender: FDA-Public Use
  Company Number: 2005UW08117

PATIENT
  Age: 45 Year
  Sex: Male
  Weight: 81.646 kg

DRUGS (6)
  1. CRESTOR [Suspect]
     Indication: BLOOD CHOLESTEROL INCREASED
     Dosage: 10 MG QD PO
     Route: 048
  2. DURAGESIC-100 [Concomitant]
  3. LORCET-HD [Concomitant]
  4. SOMA [Concomitant]
  5. LEXAPRO [Concomitant]
  6. RESTORIL [Concomitant]

REACTIONS (4)
  - ASTHENIA [None]
  - DECREASED APPETITE [None]
  - DIARRHOEA [None]
  - PAIN [None]
